FAERS Safety Report 21993384 (Version 2)
Quarter: 2023Q1

REPORT INFORMATION
  Report Type: Other
  Country: US (occurrence: None)
  Receive Date: 20230215
  Receipt Date: 20230219
  Transmission Date: 20230417
  Serious: No
  Sender: FDA-Public Use
  Company Number: US-ROCHE-3279531

PATIENT
  Age: 31 Year
  Sex: Male

DRUGS (2)
  1. OCREVUS [Suspect]
     Active Substance: OCRELIZUMAB
     Indication: Multiple sclerosis
     Dosage: 600 MG EVERY 6 MONTHS.?DATE OF INFUSIONS: 08/MAY/2020, 22/MAY/2020, 13/NOV/2020, 17/MAY/2021, 18/NOV
     Route: 042
  2. PROHANCE [Concomitant]
     Active Substance: GADOTERIDOL

REACTIONS (2)
  - Neck pain [Unknown]
  - Paternal exposure timing unspecified [Unknown]
